FAERS Safety Report 8176742-1 (Version None)
Quarter: 2012Q1

REPORT INFORMATION
  Report Type: 
  Country: None (occurrence: None)
  Receive Date: 20120123
  Receipt Date: 20111111
  Transmission Date: 20120608
  Serious: Yes (Hospitalization)
  Sender: FDA-Public Use
  Company Number: 2011AL000088

PATIENT
  Age: 54 Year
  Sex: Male

DRUGS (1)
  1. PRALATREXATE (PRALATREXATE) [Suspect]
     Indication: SQUAMOUS CELL CARCINOMA
     Dosage: ;IV
     Route: 042
     Dates: start: 20111007, end: 20111021

REACTIONS (1)
  - FATIGUE [None]
